FAERS Safety Report 21408818 (Version 2)
Quarter: 2022Q4

REPORT INFORMATION
  Report Type: Report from Study
  Country: FR (occurrence: None)
  Receive Date: 20221004
  Receipt Date: 20221020
  Transmission Date: 20230113
  Serious: Yes (Death)
  Sender: FDA-Public Use
  Company Number: 2022A333169

PATIENT
  Age: 990 Month
  Sex: Male
  Weight: 76 kg

DRUGS (1)
  1. EVUSHELD [Suspect]
     Active Substance: CILGAVIMAB\TIXAGEVIMAB
     Indication: COVID-19 prophylaxis
     Dosage: TIXAGEVIMAB 150 MG/CILGAVIMAB 150 MG, ONCE/SINGLE ADMINISTRATION
     Route: 030
     Dates: start: 20220121, end: 20220121

REACTIONS (1)
  - Diffuse large B-cell lymphoma recurrent [Fatal]

NARRATIVE: CASE EVENT DATE: 20220101
